FAERS Safety Report 8617084-7 (Version None)
Quarter: 2012Q3

REPORT INFORMATION
  Report Type: 
  Country: None (occurrence: None)
  Receive Date: 20120823
  Receipt Date: 20120816
  Transmission Date: 20120928
  Serious: No
  Sender: FDA-Public Use
  Company Number: US-009507513-1208USA007926

PATIENT

DRUGS (2)
  1. PEG-INTRON [Suspect]
     Dosage: 80 MICROGRAM, QW
     Route: 058
  2. OMEPRAZOLE [Concomitant]
     Dosage: 40 MG, UNK
     Route: 048

REACTIONS (2)
  - PAIN [None]
  - HEADACHE [None]
